FAERS Safety Report 7417275-7 (Version None)
Quarter: 2011Q2

REPORT INFORMATION
  Report Type: 
  Country: None (occurrence: None)
  Receive Date: 20110415
  Receipt Date: 20110411
  Transmission Date: 20111010
  Serious: Yes (Other)
  Sender: FDA-Public Use
  Company Number: DE-BRISTOL-MYERS SQUIBB COMPANY-15665789

PATIENT
  Age: 45 Year
  Sex: Female

DRUGS (2)
  1. ABILIFY [Suspect]
     Indication: PSYCHOTIC DISORDER
     Dosage: DOSE TAKEN ONE HALF OF A SPLITTED TAB ABILIFY 5 MG FEB08-2010,2010-2011,2011-UNK,2011-UNK
     Dates: start: 20080201
  2. ABILIFY [Suspect]
     Indication: SCHIZOPHRENIA
     Dosage: DOSE TAKEN ONE HALF OF A SPLITTED TAB ABILIFY 5 MG FEB08-2010,2010-2011,2011-UNK,2011-UNK
     Dates: start: 20080201

REACTIONS (3)
  - ALOPECIA [None]
  - PSYCHOTIC DISORDER [None]
  - WRONG TECHNIQUE IN DRUG USAGE PROCESS [None]
